FAERS Safety Report 23367964 (Version 1)
Quarter: 2024Q1

REPORT INFORMATION
  Report Type: Spontaneous
  Country: US (occurrence: US)
  Receive Date: 20240105
  Receipt Date: 20240105
  Transmission Date: 20240410
  Serious: No
  Sender: FDA-Public Use
  Company Number: US-002147023-NVSC2024US001384

PATIENT

DRUGS (1)
  1. NILOTINIB [Suspect]
     Active Substance: NILOTINIB
     Indication: Chronic myeloid leukaemia
     Dosage: 40 MSG PER DAY
     Route: 065

REACTIONS (5)
  - Skin abrasion [Unknown]
  - Keratosis pilaris [Unknown]
  - Acne [Unknown]
  - Pain [Unknown]
  - Alopecia [Unknown]
